FAERS Safety Report 7710394-7 (Version None)
Quarter: 2011Q3

REPORT INFORMATION
  Report Type: 
  Country: None (occurrence: None)
  Receive Date: 20110825
  Receipt Date: 20110810
  Transmission Date: 20111222
  Serious: Yes (Hospitalization)
  Sender: FDA-Public Use
  Company Number: US-ELI_LILLY_AND_COMPANY-US201006004750

PATIENT
  Sex: Male

DRUGS (9)
  1. FORTEO [Suspect]
     Indication: OSTEOPOROSIS
     Dosage: 20 UG, DAILY (1/D)
     Route: 065
     Dates: start: 20100501
  2. FORTEO [Suspect]
     Dosage: 20 UG, DAILY (1/D)
     Route: 065
  3. FORTEO [Suspect]
     Dosage: 20 UG, QOD
     Route: 065
  4. FORTEO [Suspect]
     Dosage: 20 UG, DAILY (1/D)
     Route: 065
  5. FORTEO [Suspect]
     Dosage: 20 UG, QOD
     Route: 065
  6. FORTEO [Suspect]
     Dosage: 20 UG, QOD
     Route: 065
  7. FORTEO [Suspect]
     Dosage: 20 UG, QOD
     Route: 065
  8. FORTEO [Suspect]
     Dosage: 20 UG, UNKNOWN
     Route: 065
  9. FORTEO [Suspect]
     Dosage: 20 UG, DAILY (1/D)
     Route: 065

REACTIONS (12)
  - COMPRESSION FRACTURE [None]
  - DRUG DOSE OMISSION [None]
  - ARTHRALGIA [None]
  - PRURITUS [None]
  - INCORRECT DRUG ADMINISTRATION RATE [None]
  - MUSCLE SPASMS [None]
  - SLEEP DISORDER DUE TO A GENERAL MEDICAL CONDITION [None]
  - HYPERSENSITIVITY [None]
  - ANXIETY [None]
  - MYALGIA [None]
  - DRUG PRESCRIBING ERROR [None]
  - SINUSITIS [None]
